FAERS Safety Report 18818275 (Version 2)
Quarter: 2021Q1

REPORT INFORMATION
  Report Type: Report from Study
  Country: None (occurrence: CR)
  Receive Date: 20210202
  Receipt Date: 20210219
  Transmission Date: 20210419
  Serious: Yes (Other)
  Sender: FDA-Public Use
  Company Number: CR-ABBVIE-21K-039-3753339-00

PATIENT
  Age: 14 Year
  Sex: Male
  Weight: 62 kg

DRUGS (1)
  1. HUMIRA [Suspect]
     Active Substance: ADALIMUMAB
     Indication: JUVENILE IDIOPATHIC ARTHRITIS
     Route: 058
     Dates: start: 20190510

REACTIONS (5)
  - Cyst [Recovering/Resolving]
  - Pain [Recovering/Resolving]
  - Drug ineffective [Recovering/Resolving]
  - Joint swelling [Recovering/Resolving]
  - Juvenile idiopathic arthritis [Recovering/Resolving]

NARRATIVE: CASE EVENT DATE: 202010
